FAERS Safety Report 10490655 (Version 2)
Quarter: 2014Q4

REPORT INFORMATION
  Report Type: Spontaneous
  Country: US (occurrence: US)
  Receive Date: 20141002
  Receipt Date: 20141002
  Transmission Date: 20150528
  Serious: No
  Sender: FDA-Public Use
  Company Number: US-GLAXOSMITHKLINE-A1035153A

PATIENT
  Age: 68 Year
  Sex: Female

DRUGS (13)
  1. LASIX [Concomitant]
     Active Substance: FUROSEMIDE
  2. DIOVAN [Concomitant]
     Active Substance: VALSARTAN
  3. MEDROL DOSE PAK [Concomitant]
  4. ADVAIR HFA [Suspect]
     Active Substance: FLUTICASONE PROPIONATE\SALMETEROL XINAFOATE
     Indication: CHRONIC OBSTRUCTIVE PULMONARY DISEASE
     Dosage: 1PUFF TWICE PER DAY
     Route: 055
     Dates: start: 201305
  5. FLOVENT [Suspect]
     Active Substance: FLUTICASONE PROPIONATE
     Indication: CHRONIC OBSTRUCTIVE PULMONARY DISEASE
     Dosage: 2PUFF TWICE PER DAY
     Route: 055
     Dates: start: 201309, end: 20140121
  6. ATENOLOL. [Concomitant]
     Active Substance: ATENOLOL
  7. C-PAP [Concomitant]
  8. ATORVASTATIN CALCIUM. [Concomitant]
     Active Substance: ATORVASTATIN CALCIUM
  9. OMEPRAZOLE. [Concomitant]
     Active Substance: OMEPRAZOLE
  10. AMBIEN [Concomitant]
     Active Substance: ZOLPIDEM TARTRATE
  11. ALBUTEROL. [Concomitant]
     Active Substance: ALBUTEROL
  12. LIPITOR [Concomitant]
     Active Substance: ATORVASTATIN CALCIUM
  13. OXYGEN. [Concomitant]
     Active Substance: OXYGEN

REACTIONS (3)
  - Drug ineffective [Recovering/Resolving]
  - Ill-defined disorder [Unknown]
  - Dyspnoea [Recovered/Resolved]

NARRATIVE: CASE EVENT DATE: 201305
